FAERS Safety Report 7955019-0 (Version None)
Quarter: 2011Q4

REPORT INFORMATION
  Report Type: 
  Country: None (occurrence: None)
  Receive Date: 20111202
  Receipt Date: 20111128
  Transmission Date: 20120403
  Serious: Yes (Hospitalization)
  Sender: FDA-Public Use
  Company Number: DE-ABBOTT-11P-062-0878519-00

PATIENT
  Sex: Male
  Weight: 87.5 kg

DRUGS (2)
  1. HUMIRA [Suspect]
     Indication: CROHN'S DISEASE
     Route: 058
     Dates: start: 20100501, end: 20100601
  2. HUMIRA [Suspect]
     Route: 058
     Dates: start: 20110619, end: 20111121

REACTIONS (5)
  - FEELING ABNORMAL [None]
  - COLD SWEAT [None]
  - PAIN IN EXTREMITY [None]
  - DIZZINESS [None]
  - CHEST DISCOMFORT [None]
